FAERS Safety Report 16113714 (Version 1)
Quarter: 2019Q1

REPORT INFORMATION
  Report Type: Spontaneous
  Country: US (occurrence: US)
  Receive Date: 20190325
  Receipt Date: 20190325
  Transmission Date: 20190418
  Serious: No
  Sender: FDA-Public Use
  Company Number: US-ALLERGAN-1832452US

PATIENT
  Age: 52 Year
  Sex: Female
  Weight: 65.76 kg

DRUGS (1)
  1. LATISSE [Suspect]
     Active Substance: BIMATOPROST
     Indication: PRODUCT USED FOR UNKNOWN INDICATION
     Dosage: UNK
     Route: 061
     Dates: start: 201806

REACTIONS (1)
  - Blepharal pigmentation [Unknown]

NARRATIVE: CASE EVENT DATE: 20180616
